FAERS Safety Report 12958602 (Version 1)
Quarter: 2016Q4

REPORT INFORMATION
  Report Type: Spontaneous
  Country: US (occurrence: US)
  Receive Date: 20161121
  Receipt Date: 20161121
  Transmission Date: 20170207
  Serious: No
  Sender: FDA-Public Use
  Company Number: US-TEVA-691225USA

PATIENT
  Age: 71 Year
  Sex: Female

DRUGS (2)
  1. PERFOROMIST [Suspect]
     Active Substance: FORMOTEROL FUMARATE DIHYDRATE
     Dosage: 20MCG/2ML
  2. BUDESONIDE. [Suspect]
     Active Substance: BUDESONIDE

REACTIONS (3)
  - Pruritus generalised [Unknown]
  - Reaction to drug excipients [Unknown]
  - Urticaria [Unknown]
